FAERS Safety Report 13266097 (Version 1)
Quarter: 2017Q1

REPORT INFORMATION
  Report Type: Spontaneous
  Country: FR (occurrence: FR)
  Receive Date: 20170223
  Receipt Date: 20170223
  Transmission Date: 20170428
  Serious: Yes (Hospitalization)
  Sender: FDA-Public Use
  Company Number: FR-PFIZER INC-2017073739

PATIENT
  Age: 82 Year
  Sex: Male

DRUGS (4)
  1. SEROPLEX [Suspect]
     Active Substance: ESCITALOPRAM OXALATE
     Dosage: UNK
     Dates: start: 20170113
  2. ANEXATE [Suspect]
     Active Substance: FLUMAZENIL
  3. DIGOXIN. [Suspect]
     Active Substance: DIGOXIN
  4. XANAX [Suspect]
     Active Substance: ALPRAZOLAM
     Indication: ANXIETY
     Dosage: 0.25 MG, 1X/DAY
     Route: 048
     Dates: end: 20170117

REACTIONS (9)
  - Morose [Unknown]
  - Overdose [Unknown]
  - Nausea [Unknown]
  - Hypokinesia [Recovered/Resolved]
  - Psychomotor skills impaired [Unknown]
  - Condition aggravated [Unknown]
  - Mutism [Unknown]
  - Activities of daily living impaired [Unknown]
  - Decreased appetite [Unknown]

NARRATIVE: CASE EVENT DATE: 201701
